FAERS Safety Report 4637327-4 (Version None)
Quarter: 2005Q2

REPORT INFORMATION
  Report Type: 
  Country: None (occurrence: None)
  Receive Date: 20050418
  Receipt Date: 20050215
  Transmission Date: 20051028
  Serious: Yes (Death, Hospitalization)
  Sender: FDA-Public Use
  Company Number: PHFR2005GB00916

PATIENT
  Age: 42 Year
  Sex: Male

DRUGS (8)
  1. CLOZARIL [Suspect]
     Indication: SCHIZOPHRENIA
     Route: 048
     Dates: start: 20040315
  2. CLOZARIL [Suspect]
     Dosage: 500MG/DAY
     Route: 048
  3. AMISULPRIDE [Suspect]
     Route: 065
  4. ZOPICLONE [Concomitant]
     Dosage: 7.5 MG NOCTE
  5. LORAZEPAM [Concomitant]
     Dosage: 1 MG NOCTE
  6. MOVICOL [Concomitant]
     Dosage: 2 DAILY
  7. SODIUM BICARBONATE [Concomitant]
     Dosage: 10 MG, BID
  8. MIRTAZAPINE [Concomitant]
     Dosage: 30 MG

REACTIONS (9)
  - ABDOMINAL DISTENSION [None]
  - CONSTIPATION [None]
  - EATING DISORDER [None]
  - INTESTINAL INFARCTION [None]
  - INTESTINAL ISCHAEMIA [None]
  - INTESTINAL PERFORATION [None]
  - MALAISE [None]
  - PERITONITIS [None]
  - WEIGHT DECREASED [None]
